FAERS Safety Report 23535766 (Version 2)
Quarter: 2024Q2

REPORT INFORMATION
  Report Type: Spontaneous
  Country: US (occurrence: US)
  Receive Date: 20240218
  Receipt Date: 20240430
  Transmission Date: 20240716
  Serious: Yes (Hospitalization)
  Sender: FDA-Public Use
  Company Number: US-JNJFOC-20240221471

PATIENT
  Age: 8 Decade
  Sex: Male

DRUGS (2)
  1. RYBREVANT [Suspect]
     Active Substance: AMIVANTAMAB-VMJW
     Indication: Lung neoplasm malignant
     Route: 065
     Dates: start: 20231107, end: 20231212
  2. RYBREVANT [Suspect]
     Active Substance: AMIVANTAMAB-VMJW
     Indication: Adenosquamous cell lung cancer

REACTIONS (5)
  - Anaphylactic reaction [Unknown]
  - Blindness [Unknown]
  - Scab [Recovered/Resolved]
  - Secretion discharge [Not Recovered/Not Resolved]
  - Pain of skin [Not Recovered/Not Resolved]
